FAERS Safety Report 9113678 (Version 1)
Quarter: 2013Q1

REPORT INFORMATION
  Report Type: Spontaneous
  Country: DK (occurrence: DK)
  Receive Date: 20130208
  Receipt Date: 20130208
  Transmission Date: 20140127
  Serious: Yes (Hospitalization)
  Sender: FDA-Public Use
  Company Number: DK-ELI_LILLY_AND_COMPANY-DK201301010321

PATIENT
  Age: 41 Year
  Sex: Female
  Weight: 63 kg

DRUGS (5)
  1. ZYPADHERA [Suspect]
  2. OLANZAPINE [Suspect]
     Route: 048
  3. METADON [Concomitant]
     Indication: DRUG DEPENDENCE
  4. NITRAZEPAM [Concomitant]
  5. DIAZEPAM [Concomitant]

REACTIONS (2)
  - Rash maculo-papular [Recovering/Resolving]
  - Erythema [Recovered/Resolved]
